FAERS Safety Report 6533074-2 (Version None)
Quarter: 2010Q1

REPORT INFORMATION
  Report Type: 
  Country: None (occurrence: None)
  Receive Date: 20100111
  Receipt Date: 20100104
  Transmission Date: 20100710
  Serious: Yes (Death, Hospitalization)
  Sender: FDA-Public Use
  Company Number: US-SANOFI-AVENTIS-200914464US

PATIENT
  Age: 55 Year
  Sex: Female
  Weight: 64 kg

DRUGS (14)
  1. ARAVA [Suspect]
     Indication: RHEUMATOID ARTHRITIS
     Route: 048
     Dates: start: 20061024, end: 20061105
  2. HUMIRA [Suspect]
     Indication: RHEUMATOID ARTHRITIS
     Dosage: DOSE AS USED: 1 INJECTION
     Route: 051
     Dates: start: 20041008
  3. HUMIRA [Suspect]
     Dosage: DOSE AS USED: 1 INJECTION
     Route: 051
     Dates: start: 20051213
  4. MOBIC [Suspect]
     Indication: ARTHRITIS
     Dosage: DOSE UNIT: 7.5 MG
     Route: 048
     Dates: start: 20050607, end: 20061101
  5. PREVACID [Suspect]
     Dosage: DOSE UNIT: 30 MG
     Route: 048
     Dates: start: 20050903
  6. QUESTRAN [Concomitant]
  7. PANTOPRAZOLE SODIUM [Concomitant]
  8. DILAUDID [Concomitant]
  9. PROTON PUMP INHIBITORS [Concomitant]
  10. PREDNISONE [Concomitant]
  11. ZOFRAN [Concomitant]
  12. MULTI-VITAMINS [Concomitant]
  13. CLONIDINE [Concomitant]
  14. COLACE [Concomitant]

REACTIONS (35)
  - ABDOMINAL PAIN [None]
  - ACUTE INTERSTITIAL PNEUMONITIS [None]
  - ASTHENIA [None]
  - ATELECTASIS [None]
  - BACK PAIN [None]
  - CHILLS [None]
  - CHROMATURIA [None]
  - COAGULOPATHY [None]
  - COUGH [None]
  - DYSPNOEA [None]
  - DYSURIA [None]
  - EAR PAIN [None]
  - HAEMORRHAGE INTRACRANIAL [None]
  - HEADACHE [None]
  - HEPATIC ENCEPHALOPATHY [None]
  - HEPATIC FAILURE [None]
  - HYPERAMMONAEMIA [None]
  - HYPOXIA [None]
  - JAUNDICE [None]
  - JOINT RANGE OF MOTION DECREASED [None]
  - LIVER FUNCTION TEST ABNORMAL [None]
  - MENTAL STATUS CHANGES [None]
  - MYALGIA [None]
  - NAUSEA [None]
  - NECK PAIN [None]
  - NIGHT SWEATS [None]
  - OROPHARYNGEAL PAIN [None]
  - PALLOR [None]
  - POLLAKIURIA [None]
  - PULMONARY EMBOLISM [None]
  - PULMONARY OEDEMA [None]
  - PYREXIA [None]
  - RASH MACULO-PAPULAR [None]
  - URTICARIA [None]
  - VOMITING [None]
